FAERS Safety Report 14606463 (Version 2)
Quarter: 2018Q2

REPORT INFORMATION
  Report Type: Spontaneous
  Country: US (occurrence: US)
  Receive Date: 20180307
  Receipt Date: 20180423
  Transmission Date: 20180711
  Serious: No
  Sender: FDA-Public Use
  Company Number: US-ASTRAZENECA-2018SE18090

PATIENT
  Sex: Female

DRUGS (2)
  1. SYMBICORT [Suspect]
     Active Substance: BUDESONIDE\FORMOTEROL FUMARATE DIHYDRATE
     Indication: INFLUENZA
     Dosage: 160/4.5 MCG, ONE PUFF, TWICE A DAY
     Route: 055
     Dates: start: 20180205
  2. SYMBICORT [Suspect]
     Active Substance: BUDESONIDE\FORMOTEROL FUMARATE DIHYDRATE
     Indication: PULMONARY CONGESTION
     Dosage: 160/4.5 MCG, ONE PUFF, TWICE A DAY
     Route: 055
     Dates: start: 20180205

REACTIONS (6)
  - Off label use [Unknown]
  - Pyrexia [Unknown]
  - Product use issue [Unknown]
  - Device failure [Unknown]
  - Cough [Unknown]
  - Bronchitis [Unknown]

NARRATIVE: CASE EVENT DATE: 20180205
